FAERS Safety Report 9848274 (Version 1)
Quarter: 2014Q1

REPORT INFORMATION
  Report Type: Spontaneous
  Country: US (occurrence: US)
  Receive Date: 20140128
  Receipt Date: 20140128
  Transmission Date: 20141002
  Serious: No
  Sender: FDA-Public Use
  Company Number: US-PFIZER INC-2014024750

PATIENT
  Age: 39 Year
  Sex: Female
  Weight: 93.88 kg

DRUGS (1)
  1. CHANTIX [Suspect]
     Indication: SMOKING CESSATION THERAPY
     Dosage: UNK
     Dates: start: 20140115, end: 20140124

REACTIONS (2)
  - Abdominal pain [Unknown]
  - Blood glucose increased [Unknown]
